FAERS Safety Report 23407954 (Version 1)
Quarter: 2024Q1

REPORT INFORMATION
  Report Type: Spontaneous
  Country: CA (occurrence: CA)
  Receive Date: 20240117
  Receipt Date: 20240117
  Transmission Date: 20240410
  Serious: Yes (Hospitalization)
  Sender: FDA-Public Use
  Company Number: None

PATIENT
  Age: 63 Year
  Sex: Male

DRUGS (14)
  1. OZEMPIC [Suspect]
     Active Substance: SEMAGLUTIDE
     Indication: Product used for unknown indication
     Dosage: 0.25 MG( 1 EVERY 1 DAYS)
     Route: 058
  2. OZEMPIC [Suspect]
     Active Substance: SEMAGLUTIDE
     Dosage: 0.5 MG( 1 EVERY 1 DAYS)
     Route: 058
  3. OZEMPIC [Suspect]
     Active Substance: SEMAGLUTIDE
     Dosage: 1 MG FREQUENCY : ONCE (THERAPY DURATION 2 DAYS)
     Route: 058
  4. AMOXICILLIN\CLAVULANATE POTASSIUM [Concomitant]
     Active Substance: AMOXICILLIN\CLAVULANATE POTASSIUM
     Dosage: UNK
  5. LORAZEPAM [Concomitant]
     Active Substance: LORAZEPAM
     Dosage: UNK
  6. ATORVASTATIN [Concomitant]
     Active Substance: ATORVASTATIN
     Dosage: UNK
  7. DAPAGLIFLOZIN [Concomitant]
     Active Substance: DAPAGLIFLOZIN
     Dosage: UNK
  8. ASPIRIN [Concomitant]
     Active Substance: ASPIRIN
     Dosage: UNK
  9. MCAL CITRATE D1000 [Concomitant]
     Dosage: UNK
  10. PANTOPRAZOLE [Concomitant]
     Active Substance: PANTOPRAZOLE
     Dosage: UNK
  11. SANDOZ GLICLAZIDE [Concomitant]
     Dosage: UNK
  12. TAMSULOSIN [Concomitant]
     Active Substance: TAMSULOSIN
     Dosage: UNK
  13. TRAZODONE [Concomitant]
     Active Substance: TRAZODONE HYDROCHLORIDE
     Dosage: UNK
  14. METFORMIN HYDROCHLORIDE [Concomitant]
     Active Substance: METFORMIN HYDROCHLORIDE
     Dosage: UNK

REACTIONS (4)
  - Lipase decreased [Recovering/Resolving]
  - Abdominal pain [Recovering/Resolving]
  - Pancreatitis [Recovering/Resolving]
  - Inappropriate schedule of product administration [Unknown]
